FAERS Safety Report 5056937-6 (Version None)
Quarter: 2006Q2

REPORT INFORMATION
  Report Type: 
  Country: None (occurrence: None)
  Receive Date: 20060621
  Receipt Date: 20051207
  Transmission Date: 20061013
  Serious: Yes (Hospitalization)
  Sender: FDA-Public Use
  Company Number: 23100231

PATIENT
  Age: 41 Year
  Sex: Male

DRUGS (11)
  1. NOVASTAN [Suspect]
     Indication: HEPARIN-INDUCED THROMBOCYTOPENIA
     Dates: start: 20051207, end: 20051207
  2. EPINEPHRINE [Concomitant]
  3. VASOPRESSIN [Concomitant]
  4. CALCIUM GLUCONATE [Concomitant]
  5. VANCOMYCIN [Concomitant]
  6. LEVAQUIN [Concomitant]
  7. PIPERACILLIN AND TAZOBACTAM [Concomitant]
  8. KC1 [Concomitant]
  9. NEXIUM [Concomitant]
  10. ATIVAN [Concomitant]
  11. TPN [Concomitant]

REACTIONS (3)
  - BRADYCARDIA [None]
  - CARDIAC ARREST [None]
  - HYPOTENSION [None]
